FAERS Safety Report 7366285-7 (Version None)
Quarter: 2011Q1

REPORT INFORMATION
  Report Type: 
  Country: None (occurrence: None)
  Receive Date: 20110322
  Receipt Date: 20110318
  Transmission Date: 20110831
  Serious: Yes (Death)
  Sender: FDA-Public Use
  Company Number: AT-SANOFI-AVENTIS-2011SA016593

PATIENT
  Age: 82 Year
  Sex: Female

DRUGS (3)
  1. OXALIPLATIN [Suspect]
     Route: 042
  2. CAPECITABINE [Suspect]
     Route: 048
  3. AVASTIN [Concomitant]
     Dates: start: 20101103, end: 20101103

REACTIONS (1)
  - VASCULAR OCCLUSION [None]
